FAERS Safety Report 8770717 (Version 2)
Quarter: 2012Q4

REPORT INFORMATION
  Report Type: Report from Study
  Country: AT (occurrence: AT)
  Receive Date: 20120907
  Receipt Date: 20120911
  Transmission Date: 20130627
  Serious: Yes (Death, Other)
  Sender: FDA-Public Use
  Company Number: AT-ROCHE-1107241

PATIENT
  Age: 61 Year
  Sex: Male

DRUGS (10)
  1. AVASTIN [Suspect]
     Indication: BRAIN NEOPLASM MALIGNANT
     Route: 042
     Dates: start: 20100416
  2. AVASTIN [Suspect]
     Route: 042
     Dates: start: 20100430
  3. AVASTIN [Suspect]
     Route: 042
     Dates: start: 20100514
  4. IRINOTECAN [Suspect]
     Indication: ANAPLASTIC ASTROCYTOMA
     Route: 065
     Dates: start: 20100603
  5. IRINOTECAN [Suspect]
     Route: 065
     Dates: start: 20100720
  6. KEPPRA [Concomitant]
     Dosage: 1.5 / 2 DAYS
     Route: 065
  7. VIMPAT [Concomitant]
     Route: 065
  8. FURADANTIN RETARD [Concomitant]
     Route: 065
  9. FORTECORTIN (AUSTRIA) [Concomitant]
     Dosage: 0.5 /1 day
     Route: 065
  10. LOVENOX [Concomitant]
     Route: 065

REACTIONS (6)
  - Erysipelas [Recovering/Resolving]
  - Abscess limb [Recovering/Resolving]
  - Lumbar vertebral fracture [Recovered/Resolved]
  - Pulmonary embolism [Fatal]
  - Nephrolithiasis [Recovered/Resolved]
  - Urinary tract infection [Recovered/Resolved]
